FAERS Safety Report 7992539-7 (Version None)
Quarter: 2011Q4

REPORT INFORMATION
  Report Type: 
  Country: None (occurrence: None)
  Receive Date: 20111219
  Receipt Date: 20111208
  Transmission Date: 20120403
  Serious: Yes (Other)
  Sender: FDA-Public Use
  Company Number: US-BAXTER-2011BH038755

PATIENT
  Age: 59 Year
  Sex: Female

DRUGS (2)
  1. GAMMAGARD LIQUID [Suspect]
     Indication: DERMATOMYOSITIS
     Route: 042
     Dates: start: 20110701
  2. GAMMAGARD LIQUID [Suspect]
     Indication: OFF LABEL USE
     Route: 042
     Dates: start: 20110701

REACTIONS (6)
  - HEADACHE [None]
  - COUGH [None]
  - BREAST CANCER [None]
  - UNEVALUABLE EVENT [None]
  - BACK PAIN [None]
  - PYREXIA [None]
